FAERS Safety Report 22151591 (Version 1)
Quarter: 2023Q1

REPORT INFORMATION
  Report Type: Spontaneous
  Country: JP (occurrence: None)
  Receive Date: 20230329
  Receipt Date: 20230329
  Transmission Date: 20230417
  Serious: Yes (Hospitalization)
  Sender: FDA-Public Use
  Company Number: JP-ROCHE-3319427

PATIENT
  Age: 68 Year
  Sex: Female
  Weight: 60 kg

DRUGS (8)
  1. RITUXIMAB [Suspect]
     Active Substance: RITUXIMAB
     Indication: Granulomatosis with polyangiitis
     Route: 041
     Dates: start: 20220706, end: 20220706
  2. RITUXIMAB [Suspect]
     Active Substance: RITUXIMAB
     Route: 041
     Dates: start: 20230210, end: 20230210
  3. TAVNEOS [Suspect]
     Active Substance: AVACOPAN
     Indication: Granulomatosis with polyangiitis
     Route: 048
     Dates: start: 20230112, end: 20230222
  4. PREDONINE [Concomitant]
     Active Substance: PREDNISOLONE
     Indication: Granulomatosis with polyangiitis
     Route: 048
     Dates: start: 20211007
  5. PREDONINE [Concomitant]
     Active Substance: PREDNISOLONE
     Route: 048
  6. SULFAMETHOXAZOLE\TRIMETHOPRIM [Concomitant]
     Active Substance: SULFAMETHOXAZOLE\TRIMETHOPRIM
  7. LANSOPRAZOLE [Concomitant]
     Active Substance: LANSOPRAZOLE
  8. BONALON [Concomitant]
     Active Substance: ALENDRONATE SODIUM

REACTIONS (1)
  - Hepatic function abnormal [Recovered/Resolved]

NARRATIVE: CASE EVENT DATE: 20230222
